FAERS Safety Report 16320036 (Version 3)
Quarter: 2019Q2

REPORT INFORMATION
  Report Type: Spontaneous
  Country: US (occurrence: US)
  Receive Date: 20190516
  Receipt Date: 20190603
  Transmission Date: 20190711
  Serious: Yes (Hospitalization)
  Sender: FDA-Public Use
  Company Number: US-CELGENEUS-USA-20190504815

PATIENT
  Age: 67 Year
  Sex: Female

DRUGS (2)
  1. AZACITIDINE. [Suspect]
     Active Substance: AZACITIDINE
     Indication: ACUTE MYELOID LEUKAEMIA
     Dosage: 75 MILLIGRAM/SQ. METER
     Route: 058
     Dates: start: 20180801, end: 20190402
  2. FT-2102 [Suspect]
     Active Substance: OLUTASIDENIB
     Indication: ACUTE MYELOID LEUKAEMIA
     Dosage: 300 MILLIGRAM
     Route: 048
     Dates: start: 20180801, end: 20190423

REACTIONS (2)
  - Human bocavirus infection [Recovered/Resolved]
  - Febrile neutropenia [Recovered/Resolved]

NARRATIVE: CASE EVENT DATE: 20190503
